FAERS Safety Report 15587162 (Version 3)
Quarter: 2019Q1

REPORT INFORMATION
  Report Type: Spontaneous
  Country: BR (occurrence: BR)
  Receive Date: 20181105
  Receipt Date: 20190220
  Transmission Date: 20190417
  Serious: Yes (Hospitalization, Other)
  Sender: FDA-Public Use
  Company Number: BR-PFIZER INC-2018248791

PATIENT
  Age: 39 Year
  Sex: Male

DRUGS (2)
  1. OMEPRAZOLE. [Concomitant]
     Active Substance: OMEPRAZOLE
     Dosage: UNK
     Dates: start: 201803
  2. SUTENT [Suspect]
     Active Substance: SUNITINIB MALATE
     Indication: METASTASES TO LUNG
     Dosage: 1 CAPSULE DAILY, CYCLIC (4X2)
     Dates: start: 20180301

REACTIONS (12)
  - Eating disorder [Unknown]
  - Dysphagia [Unknown]
  - Gastrointestinal disorder [Not Recovered/Not Resolved]
  - Wound [Unknown]
  - Pain in extremity [Unknown]
  - Abdominal pain [Unknown]
  - Blood pressure increased [Recovering/Resolving]
  - Vomiting [Unknown]
  - Cholelithiasis [Unknown]
  - Feeling abnormal [Unknown]
  - Decreased immune responsiveness [Unknown]
  - Abdominal discomfort [Unknown]

NARRATIVE: CASE EVENT DATE: 2018
